FAERS Safety Report 18911824 (Version 1)
Quarter: 2021Q1

REPORT INFORMATION
  Report Type: Spontaneous
  Country: GB (occurrence: GB)
  Receive Date: 20210219
  Receipt Date: 20210219
  Transmission Date: 20210420
  Serious: No
  Sender: FDA-Public Use
  Company Number: GB-ALKEM LABORATORIES LIMITED-GB-ALKEM-2020-07928

PATIENT
  Age: 16 Year
  Sex: Male

DRUGS (5)
  1. CEFTRIAXONE. [Concomitant]
     Active Substance: CEFTRIAXONE
     Indication: ILL-DEFINED DISORDER
     Dosage: UNK
     Route: 065
  2. FLUCLOXACILLIN [Concomitant]
     Active Substance: FLUCLOXACILLIN
     Indication: ILL-DEFINED DISORDER
     Dosage: UNK
     Route: 065
  3. PARACETAMOL [Concomitant]
     Active Substance: ACETAMINOPHEN
     Indication: ILL-DEFINED DISORDER
     Dosage: UNK
     Route: 065
  4. CO?AMOXICLAV [Concomitant]
     Active Substance: AMOXICILLIN\CLAVULANATE POTASSIUM
     Indication: ILL-DEFINED DISORDER
     Dosage: UNK
     Route: 065
  5. LINEZOLID. [Suspect]
     Active Substance: LINEZOLID
     Indication: STAPHYLOCOCCAL OSTEOMYELITIS
     Dosage: 2 DOSAGE FORM, QD (EVERY 1 DAY)
     Route: 048
     Dates: start: 20200803

REACTIONS (8)
  - Insomnia [Not Recovered/Not Resolved]
  - Acne [Not Recovered/Not Resolved]
  - Vision blurred [Recovering/Resolving]
  - Abdominal discomfort [Not Recovered/Not Resolved]
  - Thirst [Not Recovered/Not Resolved]
  - Headache [Recovering/Resolving]
  - Diarrhoea [Not Recovered/Not Resolved]
  - Tooth discolouration [Unknown]

NARRATIVE: CASE EVENT DATE: 20200803
